FAERS Safety Report 5327911-7 (Version None)
Quarter: 2007Q2

REPORT INFORMATION
  Report Type: 
  Country: None (occurrence: None)
  Receive Date: 20070517
  Receipt Date: 20070515
  Transmission Date: 20071010
  Serious: Yes (Hospitalization)
  Sender: FDA-Public Use
  Company Number: GB-ROXANE LABORATORIES, INC-2006-UK-03346UK

PATIENT
  Sex: Female
  Weight: 65 kg

DRUGS (3)
  1. BIBW 2992 [Suspect]
     Indication: LUNG CARCINOMA CELL TYPE UNSPECIFIED STAGE II
     Route: 048
     Dates: start: 20060628, end: 20060725
  2. MORPHINE [Suspect]
     Indication: PAIN
     Route: 048
     Dates: start: 20060101, end: 20060725
  3. HYOSCINE HBR HYT [Concomitant]
     Indication: HYPERHIDROSIS
     Dosage: 1MG EVERY 72 HOURS
     Route: 061
     Dates: start: 20060712, end: 20060725

REACTIONS (2)
  - DYSPNOEA [None]
  - GENERAL PHYSICAL HEALTH DETERIORATION [None]
